FAERS Safety Report 10174902 (Version 1)
Quarter: 2014Q2

REPORT INFORMATION
  Report Type: Spontaneous
  Country: CH (occurrence: CH)
  Receive Date: 20140515
  Receipt Date: 20140515
  Transmission Date: 20141212
  Serious: Yes (Hospitalization)
  Sender: FDA-Public Use
  Company Number: CH-ASTRAZENECA-2014SE31286

PATIENT
  Age: 68 Year
  Sex: Male

DRUGS (12)
  1. LISINOPRIL [Suspect]
     Indication: HYPERTENSION
     Route: 048
  2. BELOC ZOK [Interacting]
     Indication: HYPERTENSION
     Route: 048
  3. ASPIRIN CARDIO [Interacting]
     Indication: DIABETIC VASCULAR DISORDER
     Route: 048
  4. SINTROM [Interacting]
     Indication: CARDIAC VALVE DISEASE
     Dosage: CYCLIC
     Route: 048
     Dates: start: 20140305, end: 20140411
  5. TORASEMIDE [Interacting]
     Indication: HYPERTENSION
     Route: 048
  6. PANTOPRAZOLE [Concomitant]
     Indication: PROPHYLACTIC CHEMOTHERAPY
     Route: 048
  7. PANADOL [Concomitant]
     Indication: PAIN
     Dosage: 500 MG 2 PER 1 AS NECESSARY
     Route: 048
  8. NOVOMIX [Concomitant]
     Indication: INSULIN-REQUIRING TYPE 2 DIABETES MELLITUS
     Route: 058
  9. CALCIMAGON D3 [Concomitant]
     Indication: PROPHYLACTIC CHEMOTHERAPY
     Route: 048
  10. BENERVA [Concomitant]
     Indication: VITAMIN B1 DEFICIENCY
     Route: 048
  11. IMPORTAL [Concomitant]
     Indication: HEPATIC CIRRHOSIS
     Route: 048
  12. ZOLPIDEM [Concomitant]
     Indication: INSOMNIA
     Route: 048

REACTIONS (6)
  - Drug interaction [Unknown]
  - Therapeutic response increased [Recovered/Resolved]
  - Epistaxis [Recovered/Resolved]
  - Haemorrhagic anaemia [Recovered/Resolved]
  - Hypotension [Recovered/Resolved]
  - Tachycardia [Recovered/Resolved]
